FAERS Safety Report 24175671 (Version 1)
Quarter: 2024Q3

REPORT INFORMATION
  Report Type: Spontaneous
  Country: IT (occurrence: IT)
  Receive Date: 20240805
  Receipt Date: 20240805
  Transmission Date: 20241017
  Serious: Yes (Hospitalization, Other)
  Sender: MERCK
  Company Number: None

PATIENT
  Age: 67 Year
  Sex: Male
  Weight: 175 kg

DRUGS (3)
  1. KEYTRUDA [Suspect]
     Active Substance: PEMBROLIZUMAB
     Indication: Lung adenocarcinoma
     Dosage: 200 MG THREE TIMES A WEEK IN COMBINATION WITH CISPLATIN, PEMETREXED
     Route: 042
     Dates: start: 20240418, end: 20240418
  2. PEMETREXED DISODIUM [Suspect]
     Active Substance: PEMETREXED DISODIUM
     Indication: Lung adenocarcinoma
     Dosage: 500MG/M2 EVERY 21 DAYS, FIRST CYCLE PERFORMED TOTAL DOSE 895 MG
     Route: 042
     Dates: start: 20240418, end: 20240418
  3. CISPLATIN [Suspect]
     Active Substance: CISPLATIN
     Indication: Lung adenocarcinoma
     Dosage: 75 MG/M2 DAYS 1-21 PERFORMED TOTAL DOSE 134 MG
     Route: 042
     Dates: start: 20240418, end: 20240418

REACTIONS (5)
  - Gastrointestinal inflammation [Recovered/Resolved]
  - Febrile neutropenia [Recovered/Resolved]
  - Neutropenia [Recovering/Resolving]
  - Pneumonitis [Recovering/Resolving]
  - Hyponatraemia [Recovered/Resolved]

NARRATIVE: CASE EVENT DATE: 20240424
